FAERS Safety Report 20813280 (Version 1)
Quarter: 2022Q2

REPORT INFORMATION
  Report Type: Report from Study
  Country: US (occurrence: None)
  Receive Date: 20220511
  Receipt Date: 20220511
  Transmission Date: 20220721
  Serious: Yes (Life-Threatening, Other)
  Sender: FDA-Public Use
  Company Number: US-ROCHE-3093812

PATIENT
  Age: 64 Year
  Sex: Female

DRUGS (13)
  1. BEVACIZUMAB [Suspect]
     Active Substance: BEVACIZUMAB
     Indication: Ovarian epithelial cancer
     Dosage: OVER 30-60 MINUTES ON DAY 1 OF CYCLES 2?ON 23/MAR/2012, MOST RECENT DOSE OF BEVACIZUMAB WAS ADMINIST
     Route: 042
     Dates: start: 20120120
  2. BEVACIZUMAB [Suspect]
     Active Substance: BEVACIZUMAB
     Indication: Malignant peritoneal neoplasm
  3. BEVACIZUMAB [Suspect]
     Active Substance: BEVACIZUMAB
     Indication: Fallopian tube cancer
  4. PACLITAXEL [Suspect]
     Active Substance: PACLITAXEL
     Indication: Ovarian epithelial cancer
     Dosage: ON 23/MAR/2012, MOST RECENT DOSE OF PACLITAXEL WAS ADMINISTERED.?OVER 3 HOURS ON DAY 1(CYCLES1-6)
     Route: 042
     Dates: start: 20120120
  5. PACLITAXEL [Suspect]
     Active Substance: PACLITAXEL
     Indication: Malignant peritoneal neoplasm
  6. PACLITAXEL [Suspect]
     Active Substance: PACLITAXEL
     Indication: Fallopian tube cancer
  7. CARBOPLATIN [Suspect]
     Active Substance: CARBOPLATIN
     Indication: Ovarian epithelial cancer
     Dosage: ON 23/MAR/2012, MOST RECENT DOSE OF CARBOPLATIN WAS ADMINISTERED.?ON DAY 1(CYCLES1-6)
     Route: 042
     Dates: start: 20120120
  8. CARBOPLATIN [Suspect]
     Active Substance: CARBOPLATIN
     Indication: Malignant peritoneal neoplasm
  9. CARBOPLATIN [Suspect]
     Active Substance: CARBOPLATIN
     Indication: Fallopian tube cancer
  10. CASPOFUNGIN [Concomitant]
     Active Substance: CASPOFUNGIN
  11. FLUCONAZOLE [Concomitant]
     Active Substance: FLUCONAZOLE
  12. VANCOMYCIN [Concomitant]
     Active Substance: VANCOMYCIN
  13. ZOSYN [Concomitant]
     Active Substance: PIPERACILLIN SODIUM\TAZOBACTAM SODIUM

REACTIONS (4)
  - Febrile neutropenia [Recovered/Resolved]
  - Malaise [Not Recovered/Not Resolved]
  - Splenic infection [Recovered/Resolved]
  - Wound dehiscence [Recovered/Resolved]

NARRATIVE: CASE EVENT DATE: 20120402
